FAERS Safety Report 5312950-2 (Version None)
Quarter: 2007Q2

REPORT INFORMATION
  Report Type: 
  Country: None (occurrence: None)
  Receive Date: 20070430
  Receipt Date: 20070418
  Transmission Date: 20071010
  Serious: Yes (Hospitalization)
  Sender: FDA-Public Use
  Company Number: US-PFIZER INC-2006096182

PATIENT
  Sex: Female
  Weight: 93.3 kg

DRUGS (9)
  1. BEXTRA [Suspect]
     Indication: PAIN
     Route: 048
     Dates: start: 20020910, end: 20031001
  2. CELEBREX [Suspect]
     Indication: DRUG USE FOR UNKNOWN INDICATION
     Dates: start: 19990205, end: 20030831
  3. VIOXX [Suspect]
     Indication: PAIN
  4. TRILEPTAL [Concomitant]
  5. ADVIL [Concomitant]
  6. VICODIN [Concomitant]
  7. BACLOFEN [Concomitant]
  8. OCUPRESS [Concomitant]
  9. HYDROCODONE BITARTRATE + ACETAMINOPHEN [Concomitant]

REACTIONS (1)
  - CEREBROVASCULAR ACCIDENT [None]
